FAERS Safety Report 11201085 (Version 2)
Quarter: 2016Q1

REPORT INFORMATION
  Report Type: Spontaneous
  Country: US (occurrence: US)
  Receive Date: 20150619
  Receipt Date: 20160107
  Transmission Date: 20160525
  Serious: Yes (Death, Other)
  Sender: FDA-Public Use
  Company Number: US-JNJFOC-20150610645

PATIENT
  Age: 36 Year
  Sex: Female
  Weight: 47.63 kg

DRUGS (3)
  1. TYLENOL EXTRA STRENGTH [Suspect]
     Active Substance: ACETAMINOPHEN
     Indication: BACK PAIN
     Dosage: USED OFTEN/DAILY
     Route: 048
     Dates: start: 2003, end: 200402
  2. TYLENOL REGULAR STRENGTH [Suspect]
     Active Substance: ACETAMINOPHEN
     Indication: BACK PAIN
     Dosage: USED OFTEN/DAILY
     Route: 048
  3. TYLENOL PM [Suspect]
     Active Substance: ACETAMINOPHEN\DIPHENHYDRAMINE
     Indication: PRODUCT USED FOR UNKNOWN INDICATION
     Route: 048
     Dates: start: 2003, end: 200402

REACTIONS (3)
  - Toxicity to various agents [Fatal]
  - Hepatotoxicity [Fatal]
  - Hepatic failure [Fatal]

NARRATIVE: CASE EVENT DATE: 200402
